FAERS Safety Report 7153080-7 (Version None)
Quarter: 2010Q4

REPORT INFORMATION
  Report Type: 
  Country: None (occurrence: None)
  Receive Date: 20101130
  Receipt Date: 20101116
  Transmission Date: 20110411
  Serious: No
  Sender: FDA-Public Use
  Company Number: 015676

PATIENT
  Sex: Female
  Weight: 68 kg

DRUGS (1)
  1. KEPPRA [Suspect]
     Indication: CONVULSION
     Dosage: 500 MG IN AM, 750 MG IN PM SINCE FEW YEARS ORAL)
     Route: 048

REACTIONS (3)
  - GAIT DISTURBANCE [None]
  - SEBORRHOEA [None]
  - SOMNOLENCE [None]
